FAERS Safety Report 5627389-X (Version None)
Quarter: 2008Q1

REPORT INFORMATION
  Report Type: 
  Country: None (occurrence: None)
  Receive Date: 20080215
  Receipt Date: 20080206
  Transmission Date: 20080703
  Serious: Yes (Hospitalization)
  Sender: FDA-Public Use
  Company Number: JP-BRISTOL-MYERS SQUIBB COMPANY-14036495

PATIENT
  Age: 21 Year
  Sex: Male
  Weight: 68 kg

DRUGS (4)
  1. ABILIFY [Suspect]
     Indication: SCHIZOPHRENIA
     Dosage: 20JUL07-3MG;21JUL-03AUG(9MG);04AUG-16AUG(15MG);17AUG-12SEP(21MG);13SEP(18MG);14SEP-16NOV(24MG)
     Route: 048
     Dates: start: 20070720, end: 20080104
  2. WYPAX [Concomitant]
     Dosage: 16NOV07-19NOV07,34 DAYS, DOSE: 1.5 MG, TAB,20DEC07-4JAN08,16DAYS,1MG
     Route: 048
     Dates: start: 20071116, end: 20080104
  3. VALERIN [Concomitant]
     Dosage: 16NOV07-06DEC07,3WEEKS,400MG,ORAL.28DEC07-03JAN08,1WEEK,400MG,ORAL.04JAN08-CONTINUNING 600MG, ORAL.
     Route: 048
     Dates: start: 20071116
  4. OLANZAPINE [Concomitant]
     Route: 048
     Dates: start: 20080104

REACTIONS (5)
  - AGITATION [None]
  - DRUG INEFFECTIVE [None]
  - EMOTIONAL DISORDER [None]
  - HALLUCINATION, AUDITORY [None]
  - RESTLESSNESS [None]
